FAERS Safety Report 6200264-8 (Version None)
Quarter: 2009Q2

REPORT INFORMATION
  Report Type: 
  Country: None (occurrence: None)
  Receive Date: 20090518
  Receipt Date: 20090413
  Transmission Date: 20091009
  Serious: No
  Sender: FDA-Public Use
  Company Number: WAES 0904USA01899

PATIENT
  Age: 59 Year
  Sex: Female

DRUGS (4)
  1. JANUVIA [Suspect]
     Indication: DIABETES MELLITUS
     Dosage: PO
     Route: 048
     Dates: start: 20070101, end: 20090101
  2. FLORINEF [Concomitant]
  3. SYNTHROID [Concomitant]
  4. CORTISONE [Concomitant]

REACTIONS (1)
  - WEIGHT DECREASED [None]
